FAERS Safety Report 4634344-5 (Version None)
Quarter: 2005Q2

REPORT INFORMATION
  Report Type: 
  Country: None (occurrence: None)
  Receive Date: 20050411
  Receipt Date: 20050328
  Transmission Date: 20051028
  Serious: Yes (Death)
  Sender: FDA-Public Use
  Company Number: SUS1-2005-00234

PATIENT
  Age: 12 Year
  Sex: Female
  Weight: 48.98 kg

DRUGS (2)
  1. ADDERALL 10 [Suspect]
     Dosage: 20 MG IN A.M.; 10 MG IN P.M.
  2. STRATTERA [Concomitant]

REACTIONS (1)
  - SUDDEN CARDIAC DEATH [None]
